FAERS Safety Report 6497990-2 (Version None)
Quarter: 2009Q4

REPORT INFORMATION
  Report Type: 
  Country: None (occurrence: None)
  Receive Date: 20091215
  Receipt Date: 20091202
  Transmission Date: 20100525
  Serious: No
  Sender: FDA-Public Use
  Company Number: PHHY2009GB39988

PATIENT
  Sex: Male

DRUGS (13)
  1. TASIGNA [Suspect]
     Indication: CHRONIC MYELOID LEUKAEMIA
     Dosage: 400 MG, BID
     Dates: start: 20080929
  2. TASIGNA [Suspect]
     Dosage: 400 MG, UNK
  3. TASIGNA [Suspect]
     Dosage: 600 MG, UNK
  4. TASIGNA [Suspect]
     Dosage: 800 MG, UNK
  5. TIOTROPIUM [Concomitant]
     Indication: CHRONIC OBSTRUCTIVE PULMONARY DISEASE
     Dosage: 1 MG INHALATION
  6. RISEDRONIC ACID [Concomitant]
     Indication: OSTEOPENIA
     Dosage: 35 MG WEEKLY
  7. CO-CODAMOL [Concomitant]
     Indication: PAIN
     Dosage: UNK
     Route: 048
  8. PREDNISOLONE [Concomitant]
     Dosage: INTERMITTENT COURSES OF 50 G FOR 5 DAYS
  9. ANTIBIOTICS [Concomitant]
     Dosage: UNK
  10. OMEPRAZOLE [Concomitant]
     Indication: DEPRESSION
     Dosage: UNK
     Route: 048
  11. ZOPICLONE [Concomitant]
     Dosage: 75 UNK, UNK
     Route: 048
  12. ADCAL-D3 [Concomitant]
     Indication: OSTEOPENIA
     Dosage: 2 DF, UNK
     Route: 048
  13. SERETIDE [Concomitant]
     Indication: CHRONIC OBSTRUCTIVE PULMONARY DISEASE
     Dosage: 2 PUFFS INHALATION

REACTIONS (2)
  - CHRONIC OBSTRUCTIVE PULMONARY DISEASE [None]
  - RASH ERYTHEMATOUS [None]
